FAERS Safety Report 16428069 (Version 12)
Quarter: 2021Q1

REPORT INFORMATION
  Report Type: Spontaneous
  Country: US (occurrence: US)
  Receive Date: 20190613
  Receipt Date: 20210106
  Transmission Date: 20210419
  Serious: No
  Sender: FDA-Public Use
  Company Number: US-PFIZER INC-2019247941

PATIENT
  Age: 64 Year
  Sex: Male
  Weight: 86.18 kg

DRUGS (13)
  1. HYDROCHLOROTHIAZIDE. [Concomitant]
     Active Substance: HYDROCHLOROTHIAZIDE
     Dosage: UNK
  2. LOSARTAN. [Concomitant]
     Active Substance: LOSARTAN
     Dosage: UNK
  3. CAVERJECT [Suspect]
     Active Substance: ALPROSTADIL
     Dosage: 40 UG
  4. HUMALOG [Concomitant]
     Active Substance: INSULIN LISPRO
     Dosage: UNK
  5. SYNTHROID [Concomitant]
     Active Substance: LEVOTHYROXINE SODIUM
     Dosage: UNK
  6. FENOFIBRATE. [Concomitant]
     Active Substance: FENOFIBRATE
     Dosage: UNK
  7. CHLORTHALIDONE. [Concomitant]
     Active Substance: CHLORTHALIDONE
     Dosage: UNK
  8. METHYLPREDNISOLONE. [Concomitant]
     Active Substance: METHYLPREDNISOLONE
     Dosage: 4 MG, UNK
  9. TESTOSTERONE CYPIONATE. [Concomitant]
     Active Substance: TESTOSTERONE CYPIONATE
     Dosage: UNK
  10. CAVERJECT [Suspect]
     Active Substance: ALPROSTADIL
     Indication: ERECTILE DYSFUNCTION
     Dosage: 20 UG, UNK
  11. CAVERJECT [Suspect]
     Active Substance: ALPROSTADIL
     Dosage: 40 UG, AS NEEDED
     Route: 017
     Dates: start: 20171215
  12. ATORVASTATIN [Concomitant]
     Active Substance: ATORVASTATIN
     Dosage: UNK
  13. POTASSIUM CITRATE. [Concomitant]
     Active Substance: POTASSIUM CITRATE
     Dosage: UNK

REACTIONS (5)
  - Drug ineffective [Unknown]
  - Oropharyngeal discomfort [Unknown]
  - Product administration error [Unknown]
  - Product storage error [Unknown]
  - Cough [Unknown]

NARRATIVE: CASE EVENT DATE: 20190530
